FAERS Safety Report 25483969 (Version 1)
Quarter: 2025Q2

REPORT INFORMATION
  Report Type: Spontaneous
  Country: US (occurrence: None)
  Receive Date: 20250626
  Receipt Date: 20250626
  Transmission Date: 20250717
  Serious: Yes (Hospitalization)
  Sender: FDA-CTU
  Company Number: None

PATIENT
  Age: 67 Year
  Sex: Female
  Weight: 81 kg

DRUGS (1)
  1. EVENITY [Suspect]
     Active Substance: ROMOSOZUMAB-AQQG
     Indication: Bone density abnormal
     Route: 030
     Dates: start: 20250624, end: 20250624

REACTIONS (9)
  - Chills [None]
  - Body temperature increased [None]
  - Injection site swelling [None]
  - Injection site erythema [None]
  - Diarrhoea [None]
  - Vomiting [None]
  - Diverticulitis [None]
  - Disease recurrence [None]
  - Immune system disorder [None]

NARRATIVE: CASE EVENT DATE: 20250625
